FAERS Safety Report 18203285 (Version 1)
Quarter: 2020Q3

REPORT INFORMATION
  Report Type: Other
  Country: CA (occurrence: CA)
  Receive Date: 20200827
  Receipt Date: 20200827
  Transmission Date: 20201103
  Serious: Yes (Death, Hospitalization, Other)
  Sender: FDA-Public Use
  Company Number: CA-APOTEX-2020AP016797

PATIENT
  Age: 20 Year
  Sex: Female

DRUGS (2)
  1. SALBUTAMOL [Suspect]
     Active Substance: ALBUTEROL
     Indication: PRODUCT USED FOR UNKNOWN INDICATION
     Dosage: UNK
     Route: 065
  2. IBUPROFEN. [Suspect]
     Active Substance: IBUPROFEN
     Indication: PRODUCT USED FOR UNKNOWN INDICATION
     Dosage: UNK
     Route: 065

REACTIONS (10)
  - Acute kidney injury [Fatal]
  - Chest pain [Fatal]
  - Discomfort [Fatal]
  - Dyspnoea [Fatal]
  - Cough [Fatal]
  - Respiratory tract infection viral [Fatal]
  - Brain death [Fatal]
  - Pulmonary embolism [Fatal]
  - Condition aggravated [Fatal]
  - Brain injury [Fatal]
